FAERS Safety Report 24052104 (Version 1)
Quarter: 2024Q3

REPORT INFORMATION
  Report Type: Spontaneous
  Country: IN (occurrence: IN)
  Receive Date: 20240704
  Receipt Date: 20240704
  Transmission Date: 20241016
  Serious: Yes (Hospitalization, Other)
  Sender: SANDOZ
  Company Number: IN-002147023-NVSC2023IN010538

PATIENT
  Age: 49 Year
  Sex: Male

DRUGS (6)
  1. CERTICAN [Suspect]
     Active Substance: EVEROLIMUS
     Indication: Renal transplant
     Dosage: 0.25 MG, BID
     Route: 048
  2. MYFORTIC [Suspect]
     Active Substance: MYCOPHENOLATE SODIUM
     Indication: Renal transplant
     Dosage: 360 MG, TID (360MG/TDS)
     Route: 065
     Dates: start: 20221223
  3. TACROLIMUS [Suspect]
     Active Substance: TACROLIMUS
     Dosage: 1.5 MG, QD
     Route: 048
  4. TACROLIMUS [Suspect]
     Active Substance: TACROLIMUS
     Dosage: 2.0 MG, QD
     Route: 048
  5. TACROLIMUS [Suspect]
     Active Substance: TACROLIMUS
     Indication: Renal transplant
     Dosage: 2.5 MG, BID
     Route: 065
     Dates: start: 20221223
  6. TACROLIMUS [Suspect]
     Active Substance: TACROLIMUS
     Dosage: UNK, BID
     Route: 048

REACTIONS (23)
  - Septic shock [Unknown]
  - Transplant dysfunction [Recovered/Resolved]
  - Sepsis [Unknown]
  - Urine analysis abnormal [Recovered/Resolved]
  - Investigation abnormal [Recovered/Resolved]
  - Toxicity to various agents [Unknown]
  - Electrolyte imbalance [Unknown]
  - Hypoalbuminaemia [Unknown]
  - Urine output decreased [Unknown]
  - Throat irritation [Unknown]
  - Nasopharyngitis [Unknown]
  - Hypotension [Recovered/Resolved]
  - Oedema peripheral [Unknown]
  - Asthenia [Unknown]
  - Cough [Unknown]
  - Breath sounds abnormal [Unknown]
  - White blood cells urine positive [Unknown]
  - Urinary sediment present [Unknown]
  - Somnolence [Unknown]
  - Discomfort [Unknown]
  - Head discomfort [Unknown]
  - Hypertension [Unknown]
  - Pain [Unknown]

NARRATIVE: CASE EVENT DATE: 20221223
